FAERS Safety Report 10913039 (Version 2)
Quarter: 2015Q2

REPORT INFORMATION
  Report Type: Spontaneous
  Country: IE (occurrence: IE)
  Receive Date: 20150313
  Receipt Date: 20150416
  Transmission Date: 20150821
  Serious: No
  Sender: FDA-Public Use
  Company Number: IE-AMGEN-IRLSP2015023378

PATIENT
  Age: 84 Year
  Sex: Male
  Weight: 88 kg

DRUGS (1)
  1. XGEVA [Suspect]
     Active Substance: DENOSUMAB
     Indication: METASTASES TO BONE
     Dosage: 120 MG, Q4WK
     Route: 058
     Dates: start: 20140527

REACTIONS (1)
  - Pain in jaw [Recovered/Resolved]

NARRATIVE: CASE EVENT DATE: 20150303
